FAERS Safety Report 9892094 (Version 2)
Quarter: 2014Q2

REPORT INFORMATION
  Report Type: Report from Study
  Country: MX (occurrence: MX)
  Receive Date: 20140212
  Receipt Date: 20140626
  Transmission Date: 20141212
  Serious: Yes (Death, Other)
  Sender: FDA-Public Use
  Company Number: PHHY2014MX016769

PATIENT
  Age: 90 Year
  Sex: Female

DRUGS (5)
  1. STALEVO [Suspect]
     Indication: PARKINSON^S DISEASE
     Dosage: 2 DF, DAILY
     Route: 048
     Dates: start: 200101
  2. STALEVO [Suspect]
     Dosage: STALEVO (200MG/ 100MG/ 25MG)
     Route: 048
  3. EXELON [Concomitant]
     Dosage: UNK UKN, UNK
  4. CO-DIOVAN [Concomitant]
     Dosage: UNK UKN, UNK
  5. DIOVAN [Concomitant]
     Dosage: 160 MG, UNK

REACTIONS (5)
  - Death [Fatal]
  - Head injury [Recovered/Resolved]
  - Fall [Recovered/Resolved]
  - Musculoskeletal stiffness [Not Recovered/Not Resolved]
  - Movement disorder [Not Recovered/Not Resolved]
